FAERS Safety Report 7021376-5 (Version None)
Quarter: 2010Q3

REPORT INFORMATION
  Report Type: 
  Country: None (occurrence: None)
  Receive Date: 20100929
  Receipt Date: 20100823
  Transmission Date: 20110219
  Serious: No
  Sender: FDA-Public Use
  Company Number: US-PFIZER INC-2010106868

PATIENT
  Sex: Male
  Weight: 73 kg

DRUGS (4)
  1. XALATAN [Suspect]
     Indication: INTRAOCULAR PRESSURE INCREASED
     Dosage: 0.005% ONE DROP IN EACH EYE DAILY AT NIGHT
     Route: 047
     Dates: start: 20090301
  2. FOSINOPRIL SODIUM [Suspect]
     Indication: HYPERTENSION
     Dosage: UNK
     Route: 048
  3. FOSINOPRIL SODIUM [Suspect]
     Dosage: 10 MG, 1X/DAY
     Route: 048
  4. XANAX [Concomitant]
     Indication: HYPERTENSION
     Dosage: 0.5 MG, 3X/DAY
     Route: 048

REACTIONS (2)
  - BLOOD CHOLESTEROL INCREASED [None]
  - DRUG INEFFECTIVE [None]
